FAERS Safety Report 5122889-3 (Version None)
Quarter: 2006Q4

REPORT INFORMATION
  Report Type: 
  Country: None (occurrence: None)
  Receive Date: 20061009
  Receipt Date: 19990318
  Transmission Date: 20070319
  Serious: Yes (Hospitalization)
  Sender: FDA-Public Use
  Company Number: JP-ROCHE-202550

PATIENT
  Age: 35 Year
  Sex: Male

DRUGS (17)
  1. INVIRASE [Suspect]
     Indication: HIV INFECTION
     Route: 048
     Dates: start: 19971101, end: 20000113
  2. INVIRASE [Suspect]
     Route: 048
     Dates: start: 20000311, end: 20010331
  3. INVIRASE [Suspect]
     Route: 048
     Dates: start: 20030318, end: 20051025
  4. EPIVIR [Suspect]
     Indication: HIV INFECTION
     Dosage: INTERRUPTED BETWEEN 13 JAN 2000 AND 11 MAR 2000.
     Route: 048
     Dates: start: 19971101, end: 20000113
  5. EPIVIR [Suspect]
     Route: 048
     Dates: start: 20000311, end: 20010331
  6. EPIVIR [Suspect]
     Route: 048
     Dates: start: 20030318, end: 20051025
  7. ZERIT [Suspect]
     Indication: HIV INFECTION
     Dosage: INTERRUPTED BETWEEN 13 JAN 2000 AND 11 MAR 2000.
     Route: 048
     Dates: start: 19971101, end: 20000113
  8. ZERIT [Suspect]
     Route: 048
     Dates: start: 20000311, end: 20010331
  9. ZERIT [Suspect]
     Route: 048
     Dates: start: 20030203, end: 20051025
  10. LEXIVA [Suspect]
     Route: 048
     Dates: start: 20051208
  11. TRUVADA [Suspect]
     Route: 048
     Dates: start: 20051208
  12. KOGENATE [Concomitant]
     Route: 051
     Dates: start: 19991101, end: 20010331
  13. DENOSINE [Concomitant]
     Route: 048
     Dates: start: 19971101, end: 19980304
  14. BENAMBAX [Concomitant]
     Route: 055
     Dates: start: 19971101, end: 19980716
  15. URSO [Concomitant]
     Dosage: DRUG STOPPED ON 31 MAR 2001 AND RESTARTED ON 10 FEB 2003
     Route: 048
     Dates: start: 20000112
  16. ANTIHEMOPHILIC GLOBULIN [Concomitant]
     Dosage: DRUG: CROSS EIGHT M DOSE UNIT: UT DOSE FORM: INJECTABLE (NOT OTHERWISE SPECIFIED)
     Route: 050
     Dates: start: 20030203
  17. NEO-MINOPHAGEN C [Concomitant]
     Dosage: DOSE FORM: INJECTABLE (NOT OTHERWISE SPECIFIED)
     Route: 050
     Dates: start: 20030203

REACTIONS (7)
  - BILE DUCT STONE [None]
  - CONDITION AGGRAVATED [None]
  - HEPATIC FUNCTION ABNORMAL [None]
  - HEPATITIS C [None]
  - LACTIC ACIDOSIS [None]
  - RENAL FAILURE ACUTE [None]
  - SEPSIS [None]
